FAERS Safety Report 12937547 (Version 1)
Quarter: 2016Q4

REPORT INFORMATION
  Report Type: Spontaneous
  Country: IT (occurrence: IT)
  Receive Date: 20161114
  Receipt Date: 20161114
  Transmission Date: 20170207
  Serious: Yes (Hospitalization, Other)
  Sender: FDA-Public Use
  Company Number: IT-BAXTER-2016BAX056310

PATIENT
  Age: 34 Year
  Sex: Female

DRUGS (24)
  1. DOXORUBICIN [Suspect]
     Active Substance: DOXORUBICIN
     Indication: T-CELL LYMPHOMA
     Dosage: M-ACOD
     Route: 065
     Dates: start: 20130920, end: 20131203
  2. VINCRISTINE [Suspect]
     Active Substance: VINCRISTINE
     Indication: T-CELL LYMPHOMA
     Dosage: M-ACOD
     Route: 065
     Dates: start: 20130920, end: 20131203
  3. CISPLATIN. [Suspect]
     Active Substance: CISPLATIN
     Indication: T-CELL LYMPHOMA
     Dosage: 2 CHEMOTHERAPY CYCLES ACCORDING TO ESHAP SCHEDULE
     Route: 065
     Dates: start: 20140103
  4. NELARABINE [Suspect]
     Active Substance: NELARABINE
     Indication: STEM CELL TRANSPLANT
     Dosage: 2 CYCLES DAY 1,2,3
     Route: 065
     Dates: start: 20150101, end: 20150209
  5. CYTARABINE. [Suspect]
     Active Substance: CYTARABINE
     Dosage: WITH FEAM CONDITIONING
     Route: 065
     Dates: start: 20140218, end: 20140219
  6. CYCLOSPORINE. [Suspect]
     Active Substance: CYCLOSPORINE
     Indication: PROPHYLAXIS AGAINST GRAFT VERSUS HOST DISEASE
     Route: 065
  7. VINCRISTINE [Suspect]
     Active Substance: VINCRISTINE
     Dosage: 2 CYCLES
     Route: 065
     Dates: start: 20150101, end: 20150209
  8. ENDOXAN BAXTER [Suspect]
     Active Substance: CYCLOPHOSPHAMIDE
     Indication: STEM CELL TRANSPLANT
     Dosage: M-ACOD
     Route: 065
     Dates: start: 20130920, end: 20131203
  9. ENDOXAN BAXTER [Suspect]
     Active Substance: CYCLOPHOSPHAMIDE
     Indication: T-CELL LYMPHOMA
     Dosage: SECOND ALLOGENEIC PBSC TRANSPLANT FROM HLA-IDENTICAL BROTHER
     Route: 065
     Dates: start: 20150318
  10. BUSULFAN. [Suspect]
     Active Substance: BUSULFAN
     Indication: STEM CELL TRANSPLANT
     Dosage: SECOND ALLOGENEIC PBSC TRANSPLANT FROM HLA-IDENTICAL BROTHER
     Route: 065
     Dates: start: 20150318
  11. DEXAMETHASONE. [Suspect]
     Active Substance: DEXAMETHASONE
     Indication: T-CELL LYMPHOMA
     Dosage: M-ACOD
     Route: 065
     Dates: start: 20130920, end: 20131203
  12. ETOPOSIDE. [Suspect]
     Active Substance: ETOPOSIDE
     Indication: T-CELL LYMPHOMA
     Dosage: 2 CHEMOTHERAPY CYCLES ACCORDING TO ESHAP SCHEDULE
     Route: 065
     Dates: start: 20140103
  13. MELPHALAN [Suspect]
     Active Substance: MELPHALAN
     Indication: T-CELL LYMPHOMA
     Dosage: FEAM CONDITIONING
     Route: 065
     Dates: start: 20140218, end: 20140219
  14. METHOTREXATE. [Suspect]
     Active Substance: METHOTREXATE
     Indication: PROPHYLAXIS AGAINST GRAFT VERSUS HOST DISEASE
     Route: 065
  15. ETOPOSIDE. [Suspect]
     Active Substance: ETOPOSIDE
     Dosage: FEAM CONDITIONING
     Route: 065
     Dates: start: 20140218, end: 20140219
  16. METHYLPREDNISOLONE. [Suspect]
     Active Substance: METHYLPREDNISOLONE
     Indication: T-CELL LYMPHOMA
     Dosage: 2 CHEMOTHERAPY CYCLES ACCORDING TO ESHAP SCHEDULE
     Route: 065
     Dates: start: 20140103
  17. CYTARABINE. [Suspect]
     Active Substance: CYTARABINE
     Indication: T-CELL LYMPHOMA
     Dosage: 2 CHEMOTHERAPY CYCLES ACCORDING TO ESHAP SCHEDULE
     Route: 065
     Dates: start: 20140103
  18. TREOSULFAN [Suspect]
     Active Substance: TREOSULFAN
     Indication: STEM CELL TRANSPLANT
     Route: 065
     Dates: start: 20140116
  19. FOTEMUSTINE [Suspect]
     Active Substance: FOTEMUSTINE
     Indication: T-CELL LYMPHOMA
     Dosage: FEAM CONDITIONING
     Route: 065
     Dates: start: 20140218, end: 20140219
  20. METHOTREXATE. [Suspect]
     Active Substance: METHOTREXATE
     Indication: T-CELL LYMPHOMA
     Dosage: M-ACOD
     Route: 065
     Dates: start: 20130920, end: 20131203
  21. CALCIUM [Suspect]
     Active Substance: CALCIUM
     Indication: T-CELL LYMPHOMA
     Dosage: M-ACOD
     Route: 065
     Dates: start: 20130920, end: 20131203
  22. LEUCOVORIN. [Suspect]
     Active Substance: LEUCOVORIN
     Indication: T-CELL LYMPHOMA
     Dosage: M-ACOD
     Route: 065
     Dates: start: 20130920, end: 20131203
  23. FLUDARABINE [Suspect]
     Active Substance: FLUDARABINE PHOSPHATE
     Indication: STEM CELL TRANSPLANT
     Route: 065
     Dates: start: 20140116
  24. TACROLIMUS. [Suspect]
     Active Substance: TACROLIMUS
     Indication: PROPHYLAXIS AGAINST GRAFT VERSUS HOST DISEASE
     Route: 065

REACTIONS (9)
  - Pneumonia [Unknown]
  - Septic shock [Unknown]
  - Disease recurrence [Unknown]
  - Pleural effusion [Unknown]
  - Oral infection [Unknown]
  - Klebsiella infection [Unknown]
  - Gastric disorder [Unknown]
  - Pseudomonas infection [Unknown]
  - Cystitis haemorrhagic [Unknown]

NARRATIVE: CASE EVENT DATE: 20141215
